FAERS Safety Report 17344845 (Version 2)
Quarter: 2021Q1

REPORT INFORMATION
  Report Type: Spontaneous
  Country: US (occurrence: US)
  Receive Date: 20200129
  Receipt Date: 20210203
  Transmission Date: 20210419
  Serious: No
  Sender: FDA-Public Use
  Company Number: US-ALLERGAN-1944979US

PATIENT
  Sex: Female

DRUGS (13)
  1. DYSPORT [Suspect]
     Active Substance: ABOBOTULINUMTOXINA
     Dosage: UNK UNK, SINGLE
     Dates: start: 20191011, end: 20191011
  2. DYSPORT [Suspect]
     Active Substance: ABOBOTULINUMTOXINA
     Dosage: 180 UNITS, SINGLE
     Dates: start: 20190808, end: 20190808
  3. BOTOX COSMETIC [Suspect]
     Active Substance: ONABOTULINUMTOXINA
     Dosage: 68 UNITS, SINGLE
     Dates: start: 20190926, end: 20190926
  4. DYSPORT [Suspect]
     Active Substance: ABOBOTULINUMTOXINA
     Indication: PRODUCT USED FOR UNKNOWN INDICATION
     Dosage: UNK UNK, SINGLE
     Dates: start: 20191102, end: 20191102
  5. ALBUTEROL. [Concomitant]
     Active Substance: ALBUTEROL
     Indication: ASTHMA
     Route: 055
  6. BOTOX COSMETIC [Suspect]
     Active Substance: ONABOTULINUMTOXINA
     Dosage: 24 UNITS, SINGLE
     Dates: start: 20190808, end: 20190808
  7. BOTOX COSMETIC [Suspect]
     Active Substance: ONABOTULINUMTOXINA
     Dosage: 20 UNITS, SINGLE
     Dates: start: 20190808, end: 20190808
  8. BOTOX COSMETIC [Suspect]
     Active Substance: ONABOTULINUMTOXINA
     Indication: SKIN WRINKLING
     Dosage: 46 UNITS, SINGLE
     Dates: start: 20191022, end: 20191022
  9. DYSPORT [Suspect]
     Active Substance: ABOBOTULINUMTOXINA
     Dosage: 150 UNK, SINGLE
     Dates: start: 20190926, end: 20190926
  10. DYSPORT [Suspect]
     Active Substance: ABOBOTULINUMTOXINA
     Dosage: UNK UNK, SINGLE
     Dates: start: 20191022, end: 20191022
  11. FLOVENT [Concomitant]
     Active Substance: FLUTICASONE PROPIONATE
     Indication: ASTHMA
  12. BOTOX COSMETIC [Suspect]
     Active Substance: ONABOTULINUMTOXINA
     Indication: SKIN WRINKLING
     Dosage: 40 UNITS, SINGLE
     Dates: start: 20191102, end: 20191102
  13. BOTOX COSMETIC [Suspect]
     Active Substance: ONABOTULINUMTOXINA
     Indication: SKIN WRINKLING
     Dosage: 60 UNITS, SINGLE
     Dates: start: 20191011, end: 20191011

REACTIONS (8)
  - Eye pain [Recovered/Resolved]
  - Conjunctivitis [Recovered/Resolved]
  - Eye discharge [Recovered/Resolved]
  - Vision blurred [Unknown]
  - Drug ineffective [Unknown]
  - Pruritus [Recovered/Resolved]
  - Ocular hyperaemia [Recovered/Resolved]
  - Product quality issue [Unknown]
